FAERS Safety Report 11822904 (Version 2)
Quarter: 2016Q4

REPORT INFORMATION
  Report Type: Spontaneous
  Country: US (occurrence: US)
  Receive Date: 20151210
  Receipt Date: 20161121
  Transmission Date: 20170206
  Serious: Yes (Other)
  Sender: FDA-Public Use
  Company Number: US-JNJFOC-20150210156

PATIENT
  Sex: Male
  Weight: 65 kg

DRUGS (19)
  1. IMBRUVICA [Suspect]
     Active Substance: IBRUTINIB
     Indication: CHRONIC LYMPHOCYTIC LEUKAEMIA
     Route: 048
     Dates: start: 20141130
  2. FINASTERIDE. [Concomitant]
     Active Substance: FINASTERIDE
  3. PREDNISONE. [Concomitant]
     Active Substance: PREDNISONE
     Route: 048
  4. ALLOPURINOL. [Concomitant]
     Active Substance: ALLOPURINOL
     Route: 048
     Dates: start: 20130108
  5. TRILIPIX [Concomitant]
     Active Substance: FENOFIBRIC ACID
  6. TRAMADOL HCL [Concomitant]
     Active Substance: TRAMADOL HYDROCHLORIDE
     Dosage: 50 MG DAILY AS NEEDED
     Route: 048
  7. FLOMAX [Concomitant]
     Active Substance: TAMSULOSIN HYDROCHLORIDE
     Route: 048
  8. METOPROLOL. [Concomitant]
     Active Substance: METOPROLOL
     Dosage: 0.5 DF
     Route: 048
  9. FAMOTIDINE. [Concomitant]
     Active Substance: FAMOTIDINE
     Route: 048
     Dates: start: 20130821
  10. TAMSULOSIN [Concomitant]
     Active Substance: TAMSULOSIN
  11. AVODART [Concomitant]
     Active Substance: DUTASTERIDE
     Route: 048
  12. METROGEL [Concomitant]
     Active Substance: METRONIDAZOLE
     Dosage: 1%GEL
     Route: 061
  13. VALTREX [Concomitant]
     Active Substance: VALACYCLOVIR HYDROCHLORIDE
     Route: 048
  14. VORICONAZOLE. [Concomitant]
     Active Substance: VORICONAZOLE
     Dosage: 200 MG, (1 TABLET ONCE IN 12 HOURS)
     Route: 048
  15. IMBRUVICA [Suspect]
     Active Substance: IBRUTINIB
     Indication: CHRONIC LYMPHOCYTIC LEUKAEMIA
     Route: 048
     Dates: end: 20150205
  16. IMBRUVICA [Suspect]
     Active Substance: IBRUTINIB
     Indication: CHRONIC LYMPHOCYTIC LEUKAEMIA
     Route: 048
     Dates: start: 20150207
  17. FLONASE [Concomitant]
     Active Substance: FLUTICASONE PROPIONATE
     Indication: HYPERSENSITIVITY
     Dosage: PRN
     Route: 061
  18. PEPCID [Concomitant]
     Active Substance: FAMOTIDINE
  19. AZASITE [Concomitant]
     Active Substance: AZITHROMYCIN MONOHYDRATE
     Dosage: 1 % DROPS TAKE 1 DROP EYE, PRN

REACTIONS (3)
  - Basal cell carcinoma [Unknown]
  - Post procedural haemorrhage [Recovered/Resolved]
  - Thrombocytopenia [Not Recovered/Not Resolved]

NARRATIVE: CASE EVENT DATE: 2015
